FAERS Safety Report 23311457 (Version 1)
Quarter: 2023Q4

REPORT INFORMATION
  Report Type: Spontaneous
  Country: US (occurrence: US)
  Receive Date: 20231219
  Receipt Date: 20231219
  Transmission Date: 20240110
  Serious: No
  Sender: FDA-Public Use
  Company Number: US-AUROBINDO-AUR-APL-2022-054668

PATIENT
  Age: 61 Year
  Sex: Female
  Weight: 63.502 kg

DRUGS (3)
  1. ACETAMINOPHEN [Suspect]
     Active Substance: ACETAMINOPHEN
     Indication: Arthritis
     Dosage: 650 MILLIGRAM
     Route: 065
     Dates: start: 20221023, end: 20221026
  2. ACETAMINOPHEN [Suspect]
     Active Substance: ACETAMINOPHEN
     Dosage: UNK(SOME TIMES 02 A DAY AND SOME TIMES 04 A DAY)
     Route: 065
     Dates: start: 20221206
  3. DIAZEPAM [Concomitant]
     Active Substance: DIAZEPAM
     Indication: Product used for unknown indication
     Dosage: UNK
     Route: 065

REACTIONS (5)
  - Hypoacusis [Unknown]
  - Product quality issue [Unknown]
  - Manufacturing materials issue [Unknown]
  - Ear pain [Unknown]
  - Ear swelling [Unknown]
